FAERS Safety Report 21782543 (Version 1)
Quarter: 2022Q4

REPORT INFORMATION
  Report Type: Spontaneous
  Country: US (occurrence: None)
  Receive Date: 20221225
  Receipt Date: 20221225
  Transmission Date: 20230113
  Serious: Yes (Other)
  Sender: FDA-Public Use
  Company Number: None

PATIENT
  Sex: Female

DRUGS (1)
  1. CREST PRO-HEALTH RINSE [Suspect]
     Active Substance: CETYLPYRIDINIUM CHLORIDE
     Dates: start: 20221221, end: 20221225

REACTIONS (2)
  - Ageusia [None]
  - Feeling abnormal [None]

NARRATIVE: CASE EVENT DATE: 20221221
